FAERS Safety Report 8121070-3 (Version None)
Quarter: 2012Q1

REPORT INFORMATION
  Report Type: 
  Country: None (occurrence: None)
  Receive Date: 20120203
  Receipt Date: 20120202
  Transmission Date: 20120608
  Serious: Yes (Life-Threatening)
  Sender: FDA-Public Use
  Company Number: SP05362

PATIENT
  Age: 45 Year
  Sex: Male

DRUGS (2)
  1. MESALAMINE [Concomitant]
  2. VISICOL [Suspect]
     Indication: BOWEL PREPARATION
     Dosage: (45 GM), ORAL
     Route: 048
     Dates: start: 20111120, end: 20111120

REACTIONS (11)
  - PNEUMOMEDIASTINUM [None]
  - OESOPHAGEAL RUPTURE [None]
  - HAEMATOCRIT DECREASED [None]
  - NAUSEA [None]
  - WHITE BLOOD CELL COUNT INCREASED [None]
  - GASTROINTESTINAL DISORDER POSTOPERATIVE [None]
  - HAEMATEMESIS [None]
  - CHEST PAIN [None]
  - ABDOMINAL PAIN [None]
  - C-REACTIVE PROTEIN INCREASED [None]
  - HAEMOGLOBIN DECREASED [None]
